FAERS Safety Report 11200722 (Version 2)
Quarter: 2015Q3

REPORT INFORMATION
  Report Type: Spontaneous
  Country: IT (occurrence: IT)
  Receive Date: 20150618
  Receipt Date: 20150703
  Transmission Date: 20151125
  Serious: No
  Sender: FDA-Public Use
  Company Number: PHHY2015IT069058

PATIENT
  Sex: Female

DRUGS (2)
  1. OXALIPLATIN SANDOZ [Suspect]
     Active Substance: OXALIPLATIN
     Indication: COLON CANCER
     Dosage: 220 MG, UNK
     Route: 042
     Dates: start: 20150421, end: 20150513
  2. CAPECITABINE MEDAC [Concomitant]
     Active Substance: CAPECITABINE
     Indication: COLON CANCER
     Dosage: 3450 MG, UNK
     Route: 048

REACTIONS (6)
  - Throat tightness [Recovered/Resolved]
  - Abdominal pain [Recovered/Resolved]
  - Fluid overload [Recovered/Resolved]
  - Hypotension [Recovered/Resolved]
  - Pruritus [Recovered/Resolved]
  - Dyspnoea [Recovered/Resolved]

NARRATIVE: CASE EVENT DATE: 20150513
